FAERS Safety Report 7147814-5 (Version None)
Quarter: 2010Q4

REPORT INFORMATION
  Report Type: 
  Country: None (occurrence: None)
  Receive Date: 20101206
  Receipt Date: 20101206
  Transmission Date: 20110411
  Serious: No
  Sender: FDA-Public Use
  Company Number: None

PATIENT
  Age: 45 Year
  Sex: Female

DRUGS (1)
  1. PROPOXYPHENE HYDROCHLORIDE [Suspect]
     Indication: SURGERY
     Dosage: 650 MG 4 TO 6 HOURS
     Dates: start: 20101111, end: 20101115

REACTIONS (2)
  - INSOMNIA [None]
  - PALPITATIONS [None]
